FAERS Safety Report 6325621-0 (Version None)
Quarter: 2009Q3

REPORT INFORMATION
  Report Type: 
  Country: None (occurrence: None)
  Receive Date: 20090824
  Receipt Date: 20090723
  Transmission Date: 20100115
  Serious: No
  Sender: FDA-Public Use
  Company Number: US-ABBOTT-09P-163-0586904-00

PATIENT
  Sex: Female

DRUGS (11)
  1. NIASPAN [Suspect]
     Indication: BLOOD TRIGLYCERIDES INCREASED
  2. TOPROL-XL [Concomitant]
     Indication: DRUG USE FOR UNKNOWN INDICATION
  3. GLIPIZIDE [Concomitant]
     Indication: DRUG USE FOR UNKNOWN INDICATION
  4. SPIRIVA [Concomitant]
     Indication: DRUG USE FOR UNKNOWN INDICATION
  5. ASPIRIN [Concomitant]
     Indication: DRUG USE FOR UNKNOWN INDICATION
  6. CLARITIN [Concomitant]
     Indication: DRUG USE FOR UNKNOWN INDICATION
  7. ADVAIR HFA [Concomitant]
     Indication: DRUG USE FOR UNKNOWN INDICATION
  8. VYTORIN [Concomitant]
     Indication: DRUG USE FOR UNKNOWN INDICATION
  9. LISINOPRIL HYDROCHLORTHIAZID [Concomitant]
     Indication: DRUG USE FOR UNKNOWN INDICATION
  10. ACTONEL [Concomitant]
     Indication: DRUG USE FOR UNKNOWN INDICATION
  11. METFORMIN HCL [Concomitant]
     Indication: DRUG USE FOR UNKNOWN INDICATION

REACTIONS (1)
  - FLUSHING [None]
